FAERS Safety Report 4729930-8 (Version None)
Quarter: 2005Q3

REPORT INFORMATION
  Report Type: 
  Country: None (occurrence: None)
  Receive Date: 20050728
  Receipt Date: 20050413
  Transmission Date: 20060218
  Serious: Yes (Hospitalization)
  Sender: FDA-Public Use
  Company Number: 2005BI007548

PATIENT
  Age: 51 Year
  Sex: Female

DRUGS (10)
  1. AVONEX [Suspect]
     Indication: MULTIPLE SCLEROSIS
     Dosage: 30 UG;QW; IM
     Route: 030
     Dates: start: 20050311
  2. TOPROL-XL [Concomitant]
  3. LASIX [Concomitant]
  4. KLOR-CON [Concomitant]
  5. LORTAB [Concomitant]
  6. ELAVIL [Concomitant]
  7. FLEXERIL [Concomitant]
  8. AMBIEN [Concomitant]
  9. MULTI-VITAMINS [Concomitant]
  10. DIOVAN [Concomitant]

REACTIONS (6)
  - CHEST DISCOMFORT [None]
  - CHEST PAIN [None]
  - DYSPNOEA [None]
  - HYPERTENSION [None]
  - IRON DEFICIENCY ANAEMIA [None]
  - MENSTRUATION IRREGULAR [None]
